FAERS Safety Report 4726734-7 (Version None)
Quarter: 2005Q3

REPORT INFORMATION
  Report Type: 
  Country: None (occurrence: None)
  Receive Date: 20050725
  Receipt Date: 20050418
  Transmission Date: 20060218
  Serious: No
  Sender: FDA-Public Use
  Company Number: USA050495954

PATIENT
  Age: 8 Year
  Sex: Male

DRUGS (1)
  1. STRATTERA [Suspect]
     Indication: ATTENTION DEFICIT/HYPERACTIVITY DISORDER
     Dosage: 25 MG DAY
     Dates: start: 20030801, end: 20050413

REACTIONS (7)
  - ANXIETY DISORDER [None]
  - DEPRESSED MOOD [None]
  - DEPRESSION [None]
  - MENTAL DISORDER [None]
  - NEGATIVISM [None]
  - SELF-INJURIOUS IDEATION [None]
  - WEIGHT INCREASED [None]
